FAERS Safety Report 25349875 (Version 1)
Quarter: 2025Q2

REPORT INFORMATION
  Report Type: Spontaneous
  Country: GB (occurrence: GB)
  Receive Date: 20250523
  Receipt Date: 20250523
  Transmission Date: 20250716
  Serious: Yes (Other)
  Sender: ACCORD
  Company Number: GB-Accord-485416

PATIENT
  Age: 44 Year
  Sex: Male

DRUGS (1)
  1. DIMETHYL FUMARATE [Suspect]
     Active Substance: DIMETHYL FUMARATE
     Indication: Multiple sclerosis

REACTIONS (2)
  - Necrotising retinitis [Recovered/Resolved]
  - Varicella zoster virus infection [Recovered/Resolved]
